FAERS Safety Report 15636549 (Version 1)
Quarter: 2018Q4

REPORT INFORMATION
  Report Type: Spontaneous
  Country: US (occurrence: US)
  Receive Date: 20181120
  Receipt Date: 20181120
  Transmission Date: 20190205
  Serious: No
  Sender: FDA-Public Use
  Company Number: US-CIPLA LTD.-2018US19276

PATIENT

DRUGS (2)
  1. GABAPENTIN. [Suspect]
     Active Substance: GABAPENTIN
     Indication: NEURALGIA
     Dosage: 2 DF, BID (2 CAPSULES IN THE MORNING AND 2 CAPSULES AT NIGHT)
     Route: 048
     Dates: start: 20180529
  2. GABAPENTIN. [Suspect]
     Active Substance: GABAPENTIN
     Dosage: 2 DF, TID (2 CAPSULES IN THE MORNING, 2 CAPSULES IN THE AFTERNOON AND 2 CAPSULES AT NIGHT)
     Route: 048
     Dates: start: 201806

REACTIONS (1)
  - Drug ineffective [Unknown]
